FAERS Safety Report 6711376-4 (Version None)
Quarter: 2010Q2

REPORT INFORMATION
  Report Type: 
  Country: None (occurrence: None)
  Receive Date: 20100505
  Receipt Date: 20100429
  Transmission Date: 20101027
  Serious: Yes (Hospitalization)
  Sender: FDA-Public Use
  Company Number: FR-SANOFI-AVENTIS-2010SA024655

PATIENT
  Age: 16 Year
  Sex: Female

DRUGS (2)
  1. LASIX [Suspect]
     Indication: ASCITES
     Route: 042
     Dates: start: 20100417
  2. ALBUMIN HUMAN ^MERIEUX^ [Suspect]
     Indication: ASCITES
     Dosage: DOSE:200 MILLIGRAM(S)/MILLILITRE
     Route: 042
     Dates: start: 20100417, end: 20100417

REACTIONS (3)
  - HEART RATE INCREASED [None]
  - HYPERTHERMIA [None]
  - PRURITUS [None]
